FAERS Safety Report 8781844 (Version 3)
Quarter: 2013Q1

REPORT INFORMATION
  Report Type: Spontaneous
  Country: US (occurrence: US)
  Receive Date: 20120913
  Receipt Date: 20130107
  Transmission Date: 20140127
  Serious: Yes (Hospitalization)
  Sender: FDA-Public Use
  Company Number: US-BAYER-2012-094975

PATIENT
  Age: 19 Year
  Sex: Female
  Weight: 66.67 kg

DRUGS (9)
  1. OCELLA [Suspect]
     Indication: POLYCYSTIC OVARIES
     Dosage: UNK
     Dates: start: 201006, end: 201201
  2. OCELLA [Suspect]
     Indication: POLYCYSTIC OVARIES
     Dosage: UNK
     Dates: start: 201007, end: 201201
  3. YAZ [Suspect]
     Indication: POLYCYSTIC OVARIES
     Dosage: UNK
     Dates: start: 201002, end: 201006
  4. YASMIN [Suspect]
  5. PHENERGAN [Concomitant]
  6. DARVOCET [Concomitant]
  7. CIPRO [Concomitant]
  8. PEPCID [Concomitant]
     Indication: GASTROINTESTINAL DISORDER
  9. TYLENOL [Concomitant]

REACTIONS (14)
  - Cholecystectomy [None]
  - Biliary dyskinesia [None]
  - Off label use [None]
  - Injury [None]
  - Scar [None]
  - Medical diet [None]
  - Abdominal distension [None]
  - Flatulence [None]
  - Dyspepsia [None]
  - Constipation [None]
  - Diarrhoea [None]
  - Anxiety [None]
  - Depression [None]
  - Pain [None]
